FAERS Safety Report 17182876 (Version 1)
Quarter: 2019Q4

REPORT INFORMATION
  Report Type: Spontaneous
  Country: ES (occurrence: ES)
  Receive Date: 20191220
  Receipt Date: 20191220
  Transmission Date: 20200122
  Serious: Yes (Hospitalization)
  Sender: FDA-Public Use
  Company Number: ES-TEVA-2019-ES-1153826

PATIENT
  Age: 72 Year
  Sex: Female

DRUGS (2)
  1. FLUOROURACILO (272A) [Interacting]
     Active Substance: FLUOROURACIL
     Indication: RECTAL ADENOCARCINOMA
     Dosage: FOLFOX NEOADYUVANTE HOME 28.06.2019,  FUC 12.07.2019.
     Route: 042
     Dates: start: 20190628, end: 20190712
  2. OXALIPLATINO [Suspect]
     Active Substance: OXALIPLATIN
     Indication: RECTAL ADENOCARCINOMA
     Dosage: FOLFOX NEOADYUVANTE HOME 28.06.2019,  FUC 12.07.2019.
     Route: 042
     Dates: start: 20190628, end: 20190712

REACTIONS (5)
  - Agranulocytosis [Recovered/Resolved]
  - Drug interaction [Unknown]
  - Urinary tract infection [Recovered/Resolved]
  - Pyrexia [Recovered/Resolved]
  - Pneumonia [Recovered/Resolved]

NARRATIVE: CASE EVENT DATE: 20190725
